FAERS Safety Report 7912705-6 (Version None)
Quarter: 2011Q4

REPORT INFORMATION
  Report Type: 
  Country: None (occurrence: None)
  Receive Date: 20111114
  Receipt Date: 20111101
  Transmission Date: 20120403
  Serious: Yes (Disabling)
  Sender: FDA-Public Use
  Company Number: GB-MYLANLABS-2011S1022497

PATIENT
  Age: 84 Year
  Sex: Female

DRUGS (6)
  1. DOXYCYCLINE [Suspect]
     Indication: TOOTH INFECTION
     Route: 048
     Dates: start: 20110926, end: 20111002
  2. DOXYCYCLINE [Suspect]
     Route: 048
     Dates: start: 20110926, end: 20111002
  3. SPIRIVA [Concomitant]
     Indication: PRODUCT USED FOR UNKNOWN INDICATION
  4. VENTOLIN [Concomitant]
     Indication: PRODUCT USED FOR UNKNOWN INDICATION
  5. PREDNISOLONE [Concomitant]
     Indication: PRODUCT USED FOR UNKNOWN INDICATION
  6. BECLOMETHASONE DIPROPIONATE [Concomitant]
     Indication: PRODUCT USED FOR UNKNOWN INDICATION

REACTIONS (3)
  - VISUAL IMPAIRMENT [None]
  - CONDITION AGGRAVATED [None]
  - DYSPNOEA [None]
